FAERS Safety Report 11181068 (Version 1)
Quarter: 2015Q2

REPORT INFORMATION
  Report Type: Report from Study
  Country: MX (occurrence: MX)
  Receive Date: 20150611
  Receipt Date: 20150611
  Transmission Date: 20150821
  Serious: Yes (Other)
  Sender: FDA-Public Use
  Company Number: MX-ELI_LILLY_AND_COMPANY-MX201506002587

PATIENT
  Sex: Male

DRUGS (1)
  1. LISPRO 25LIS75NPL KWIKPEN / MIRIOPEN [Suspect]
     Active Substance: INSULIN LISPRO
     Indication: TYPE 2 DIABETES MELLITUS
     Dosage: UNK
     Route: 065

REACTIONS (3)
  - Syncope [Unknown]
  - Incoherent [Unknown]
  - Hypoglycaemia [Unknown]
